FAERS Safety Report 16413500 (Version 1)
Quarter: 2019Q2

REPORT INFORMATION
  Report Type: Spontaneous
  Country: GB (occurrence: GB)
  Receive Date: 20190611
  Receipt Date: 20190611
  Transmission Date: 20190711
  Serious: Yes (Other)
  Sender: FDA-Public Use
  Company Number: GB-IPCA LABORATORIES LIMITED-IPC-2019-GB-000703

PATIENT

DRUGS (3)
  1. PREDNISOLONE. [Concomitant]
     Active Substance: PREDNISOLONE
     Indication: HAEMANGIOMA
     Dosage: 3 MG/KG, QD
     Route: 065
  2. PROPRANOLOL [Suspect]
     Active Substance: PROPRANOLOL HYDROCHLORIDE
     Indication: SCLEROSING PNEUMOCYTOMA
     Dosage: 1 MG/KG, QD
     Route: 048
  3. PROPRANOLOL [Suspect]
     Active Substance: PROPRANOLOL HYDROCHLORIDE
     Dosage: 2 MG/KG, QD
     Route: 048

REACTIONS (4)
  - Haemangioma [Recovered/Resolved]
  - Treatment failure [Unknown]
  - Condition aggravated [Recovered/Resolved]
  - Drug resistance [Unknown]
